FAERS Safety Report 8477885-5 (Version None)
Quarter: 2012Q2

REPORT INFORMATION
  Report Type: 
  Country: None (occurrence: None)
  Receive Date: 20120629
  Receipt Date: 20120618
  Transmission Date: 20120825
  Serious: Yes (Other)
  Sender: FDA-Public Use
  Company Number: US-VERTEX PHARMACEUTICALS INC.-AE-2012-009117

PATIENT
  Sex: Female
  Weight: 60.382 kg

DRUGS (11)
  1. RIBAVIRIN [Concomitant]
     Dates: start: 20120522
  2. IMODIUM [Concomitant]
  3. ACETAMINOPHEN [Concomitant]
  4. LORAZEPAM [Concomitant]
  5. PEGASYS [Concomitant]
     Indication: HEPATITIS C
     Dates: start: 20120420, end: 20120525
  6. PEGASYS [Concomitant]
     Dates: start: 20120525, end: 20120613
  7. KLOR-CON [Concomitant]
  8. INCIVEK [Suspect]
     Indication: HEPATITIS C
     Route: 048
     Dates: start: 20120420
  9. RIBAVIRIN [Concomitant]
     Indication: HEPATITIS C
     Route: 048
     Dates: start: 20120420, end: 20120522
  10. PEGASYS [Concomitant]
     Dates: start: 20120613
  11. PROCRIT [Concomitant]

REACTIONS (9)
  - RENAL FAILURE [None]
  - NEUTROPENIA [None]
  - DIARRHOEA [None]
  - RASH [None]
  - HAEMOLYTIC ANAEMIA [None]
  - WEIGHT DECREASED [None]
  - PYREXIA [None]
  - FATIGUE [None]
  - NAUSEA [None]
